FAERS Safety Report 8073614-8 (Version None)
Quarter: 2012Q1

REPORT INFORMATION
  Report Type: 
  Country: None (occurrence: None)
  Receive Date: 20120126
  Receipt Date: 20120117
  Transmission Date: 20120608
  Serious: Yes (Other)
  Sender: FDA-Public Use
  Company Number: AT-TEVA-318840ISR

PATIENT
  Age: 53 Year
  Sex: Female
  Weight: 58 kg

DRUGS (1)
  1. INDOMETHACIN [Suspect]
     Dosage: 150 MILLIGRAM;
     Route: 048
     Dates: start: 20111230, end: 20111231

REACTIONS (2)
  - CARDIOVASCULAR DISORDER [None]
  - NAUSEA [None]
